FAERS Safety Report 26209045 (Version 1)
Quarter: 2025Q4

REPORT INFORMATION
  Report Type: Spontaneous
  Country: GB (occurrence: GB)
  Receive Date: 20251229
  Receipt Date: 20251229
  Transmission Date: 20260118
  Serious: Yes (Life-Threatening, Hospitalization, Other)
  Sender: HIKMA
  Company Number: GB-MLMSERVICE-20251208-PI743455-00255-1

PATIENT
  Age: 55 Year
  Sex: Female

DRUGS (5)
  1. CARBOPLATIN [Suspect]
     Active Substance: CARBOPLATIN
     Indication: Triple negative breast cancer
     Dosage: UNKNOWN AUC 1.5, 1 CYCLE
  2. EPIRUBICIN [Suspect]
     Active Substance: EPIRUBICIN
     Indication: Triple negative breast cancer
     Dosage: UNKNOWN 1 CYCLE
     Route: 065
  3. PACLITAXEL [Suspect]
     Active Substance: PACLITAXEL
     Indication: Triple negative breast cancer
     Dosage: 80 MILLIGRAM/SQ. METER, WEEKLY 1 CYCLE
     Dates: start: 2023, end: 2023
  4. CYCLOPHOSPHAMIDE [Suspect]
     Active Substance: CYCLOPHOSPHAMIDE
     Indication: Triple negative breast cancer
     Dosage: UNKNOWN 1 CYCLE
     Route: 065
  5. PEMBROLIZUMAB [Suspect]
     Active Substance: PEMBROLIZUMAB
     Indication: Triple negative breast cancer
     Dosage: 200 MILLIGRAM 1 CYCLE

REACTIONS (3)
  - Colitis [Recovering/Resolving]
  - Hepatitis [Recovering/Resolving]
  - Keratitis [Recovered/Resolved]

NARRATIVE: CASE EVENT DATE: 20230101
